FAERS Safety Report 9976108 (Version 2)
Quarter: 2015Q1

REPORT INFORMATION
  Report Type: Spontaneous
  Country: DK (occurrence: DE)
  Receive Date: 20140306
  Receipt Date: 20150128
  Transmission Date: 20150721
  Serious: Yes (Congenital Anomaly, Other)
  Sender: FDA-Public Use
  Company Number: DE-FRI-1000060393

PATIENT
  Age: 0 Day
  Sex: Male
  Weight: 2.78 kg

DRUGS (8)
  1. FOLIO [Concomitant]
     Active Substance: FOLIC ACID
     Indication: PROPHYLAXIS OF NEURAL TUBE DEFECT
     Dosage: 0.4 MG
     Route: 064
     Dates: start: 20120502, end: 20121217
  2. METOBETA [Concomitant]
     Indication: HYPERTENSION
     Dosage: 100 MG
     Route: 064
     Dates: start: 20120330, end: 20121221
  3. CITALOPRAM [Suspect]
     Active Substance: CITALOPRAM HYDROBROMIDE
     Indication: ANXIETY DISORDER
     Dosage: 10 MG
     Route: 064
     Dates: start: 20120701, end: 20121221
  4. INSUMAN BASAL [Concomitant]
     Indication: GESTATIONAL DIABETES
     Route: 064
     Dates: start: 20121009, end: 20121221
  5. ASPIRIN. [Concomitant]
     Active Substance: ASPIRIN
     Indication: COAGULOPATHY
     Dosage: 100 MG
     Route: 064
     Dates: start: 20120510, end: 20121115
  6. TREVILOR RETARD [Suspect]
     Active Substance: VENLAFAXINE HYDROCHLORIDE
     Indication: ANXIETY DISORDER
     Dosage: 75 MG
     Route: 064
     Dates: start: 20120330, end: 20120501
  7. L-THYROXIN [Concomitant]
     Active Substance: LEVOTHYROXINE SODIUM
     Indication: HYPOTHYROIDISM
     Dosage: 125 MICROGRAMS
     Route: 064
     Dates: start: 20120330, end: 20121221
  8. FRAGMIN [Concomitant]
     Active Substance: DALTEPARIN SODIUM
     Indication: COAGULOPATHY
     Dosage: 7500 IU
     Route: 064
     Dates: start: 20120503, end: 20121221

REACTIONS (4)
  - Congenital hydronephrosis [Not Recovered/Not Resolved]
  - Foetal heart rate deceleration abnormality [Unknown]
  - Haemangioma [Unknown]
  - Foetal exposure during pregnancy [Not Recovered/Not Resolved]

NARRATIVE: CASE EVENT DATE: 20121221
